FAERS Safety Report 24644605 (Version 1)
Quarter: 2024Q4

REPORT INFORMATION
  Report Type: Spontaneous
  Country: CA (occurrence: CA)
  Receive Date: 20241121
  Receipt Date: 20241121
  Transmission Date: 20250115
  Serious: Yes (Other)
  Sender: NOVO NORDISK
  Company Number: None

PATIENT
  Age: 8 Year
  Sex: Male

DRUGS (1)
  1. NORDITROPIN [Suspect]
     Active Substance: SOMATROPIN
     Indication: Small for dates baby
     Dosage: 1.0 MILLIGRAM; 0.8 MILLIGRAM
     Route: 058

REACTIONS (2)
  - Dry skin [Unknown]
  - Ichthyosis [Unknown]
